FAERS Safety Report 9635478 (Version 1)
Quarter: 2013Q4

REPORT INFORMATION
  Report Type: Spontaneous
  Country: US (occurrence: US)
  Receive Date: 20131021
  Receipt Date: 20131021
  Transmission Date: 20140711
  Serious: Yes (Hospitalization)
  Sender: FDA-Public Use
  Company Number: US-BAYER-2013-126267

PATIENT
  Age: 41 Year
  Sex: Female
  Weight: 129.71 kg

DRUGS (6)
  1. YASMIN [Suspect]
     Indication: OVARIAN CYST
  2. YASMIN [Suspect]
     Indication: MIGRAINE
  3. YASMIN [Suspect]
     Indication: MENORRHAGIA
  4. VITAMIN C [Concomitant]
     Dosage: 500 MG, ONCE DAILY
  5. MULTIVITAMIN [Concomitant]
     Dosage: ONCE DAILY
  6. COLACE [Concomitant]

REACTIONS (1)
  - Pulmonary embolism [Recovered/Resolved]
